FAERS Safety Report 10188128 (Version 2)
Quarter: 2014Q2

REPORT INFORMATION
  Report Type: Spontaneous
  Country: GB (occurrence: None)
  Receive Date: 20140520
  Receipt Date: 20140528
  Transmission Date: 20141212
  Serious: Yes (Hospitalization, Other)
  Sender: FDA-Public Use
  Company Number: AUR-APL-2014-05791

PATIENT
  Age: 55 Year
  Sex: Female

DRUGS (10)
  1. RIBAVIRIN [Suspect]
     Indication: HEPATITIS C
     Dates: start: 20130823
  2. PEGYLATED INTERFERON NOS [Suspect]
     Indication: HEPATITIS C
     Dates: start: 20130823
  3. INCIVO (TELAPREVIR) [Suspect]
     Indication: HEPATITIS C
     Dosage: ORAL  STOPPED
     Route: 048
     Dates: start: 20130823
  4. AMITRIPTYLINE (AMITRIPTYLINE) [Concomitant]
  5. CALCICHEW (CALCIUM CARBONATE) [Concomitant]
  6. LANSOPRAZOLE (LANSOPRAZOLE) [Concomitant]
  7. NICOTINE (NICOTINE) [Concomitant]
  8. NIFEDIPINE (NIFEDIPINE) (NIFEDIPINE) [Concomitant]
  9. TRAMADOL (TRAMADOL) [Concomitant]
  10. BOCEPREVIR (BOCEPREVIR) [Concomitant]

REACTIONS (9)
  - Nausea [None]
  - Vomiting [None]
  - Renal failure acute [None]
  - Anaemia [None]
  - Fluid overload [None]
  - Drug level below therapeutic [None]
  - Hepatocellular carcinoma [None]
  - Liver transplant [None]
  - Sepsis [None]
